FAERS Safety Report 10049833 (Version 2)
Quarter: 2014Q2

REPORT INFORMATION
  Report Type: Spontaneous
  Country: US (occurrence: None)
  Receive Date: 20140328
  Receipt Date: 20140417
  Transmission Date: 20141212
  Serious: Yes (Other)
  Sender: FDA-Public Use
  Company Number: VAL_03044_2014

PATIENT
  Age: 49 Year
  Sex: Female

DRUGS (1)
  1. BROMOCRIPTINE [Suspect]
     Indication: PROLACTINOMA
     Dosage: 5 MG BID, ORAL
     Route: 048
     Dates: start: 200511, end: 2006

REACTIONS (1)
  - Hepatic enzyme increased [None]
